FAERS Safety Report 7655116-3 (Version None)
Quarter: 2011Q3

REPORT INFORMATION
  Report Type: 
  Country: None (occurrence: None)
  Receive Date: 20110804
  Receipt Date: 20080728
  Transmission Date: 20111222
  Serious: Yes (Death, Other)
  Sender: FDA-Public Use
  Company Number: US-BAYER-200825636NA

PATIENT
  Age: 71 Year
  Sex: Male
  Weight: 104.31 kg

DRUGS (17)
  1. ENALAPRIL MALEATE [Concomitant]
  2. EPOGEN [Concomitant]
  3. NORVASC [Concomitant]
  4. MAGNEVIST [Suspect]
     Indication: NUCLEAR MAGNETIC RESONANCE IMAGING
     Dosage: 20 ML, ONCE
     Route: 042
     Dates: start: 20020604, end: 20020604
  5. MAGNEVIST [Suspect]
     Indication: NUCLEAR MAGNETIC RESONANCE IMAGING BRAIN
     Dosage: 20 ML, ONCE
     Dates: start: 20030124, end: 20030124
  6. ARANESP [Concomitant]
  7. DIGOXIN [Concomitant]
  8. MAGNEVIST [Suspect]
     Dosage: 17 ML, ONCE
     Route: 042
     Dates: start: 20040927, end: 20040927
  9. METHOTREXATE [Concomitant]
  10. RENAGEL [Concomitant]
  11. OMNISCAN [Suspect]
     Indication: ANGIOGRAM
     Dosage: 40 ML, ONCE
     Dates: start: 20021224, end: 20021224
  12. GADOLINIUM IN UNSPECIFIED DRUG [Suspect]
     Indication: ANGIOGRAM
     Dosage: UNK UNK, ONCE
     Dates: start: 20001002, end: 20001002
  13. FERROUS SULFATE TAB [Concomitant]
  14. NITROGLYCERIN [Concomitant]
  15. TIAZAC [Concomitant]
  16. LASIX [Concomitant]
  17. SYNTHROID [Concomitant]

REACTIONS (18)
  - SCAR [None]
  - ANHEDONIA [None]
  - SKIN TIGHTNESS [None]
  - MUSCULOSKELETAL STIFFNESS [None]
  - FIBROSIS [None]
  - INJURY [None]
  - SKIN INDURATION [None]
  - MYOPATHY [None]
  - NEPHROGENIC SYSTEMIC FIBROSIS [None]
  - PAIN [None]
  - EMOTIONAL DISTRESS [None]
  - DEPRESSION [None]
  - SKIN FIBROSIS [None]
  - QUALITY OF LIFE DECREASED [None]
  - GENERAL PHYSICAL HEALTH DETERIORATION [None]
  - MUSCLE CONTRACTURE [None]
  - JOINT CONTRACTURE [None]
  - ANXIETY [None]
